FAERS Safety Report 5571920-X (Version None)
Quarter: 2007Q4

REPORT INFORMATION
  Report Type: 
  Country: None (occurrence: None)
  Receive Date: 20071221
  Receipt Date: 20071210
  Transmission Date: 20080405
  Serious: Yes (Other)
  Sender: FDA-Public Use
  Company Number: GB-RANBAXY-2007RR-12036

PATIENT

DRUGS (10)
  1. GABAPENTIN BASICS B 600MG FILMTABLETTEN [Suspect]
     Indication: NEURALGIA
     Dosage: 300 MG, QID
     Route: 048
     Dates: start: 20040415, end: 20070801
  2. AMLODIPINE [Concomitant]
     Dosage: 10 MG, QD
  3. DOXAZOSIN 4MG TABLETS [Concomitant]
     Dosage: 4 MG, BID
  4. FUROSEMIDE TABLETS BP 40MG [Concomitant]
     Dosage: 40 MG, TID
  5. GLIMEPIRIDE [Concomitant]
     Dosage: 4 MG, QD
  6. METFORMIN 500MG TABLETS BP [Concomitant]
     Dosage: 500 MG, BID
  7. PERINDOPRIL TERT-BUTYLAMINE [Concomitant]
     Dosage: 4 MG, QD
  8. QUININE SULPHATE TABLETS [Concomitant]
     Dosage: 300 MG, QD
  9. ROSUVASTATIN [Concomitant]
     Dosage: 10 MG, QD
  10. SILDENAFIL CITRATE [Concomitant]
     Dosage: 100 MG, 1/WEEK

REACTIONS (1)
  - DIABETES MELLITUS INADEQUATE CONTROL [None]
